FAERS Safety Report 4485760-6 (Version None)
Quarter: 2004Q4

REPORT INFORMATION
  Report Type: 
  Country: None (occurrence: None)
  Receive Date: 20041026
  Receipt Date: 20041015
  Transmission Date: 20050328
  Serious: Yes (Other)
  Sender: FDA-Public Use
  Company Number: FR-JNJFOC-20041004805

PATIENT
  Age: 74 Year
  Sex: Male

DRUGS (7)
  1. TOPALGIC [Suspect]
     Route: 049
  2. NOVONORM [Suspect]
  3. LIPANOR [Concomitant]
     Indication: DRUG USE FOR UNKNOWN INDICATION
  4. APROVEL [Concomitant]
  5. PLAVIX [Concomitant]
  6. GLUCOPHAGE [Concomitant]
  7. CREON [Concomitant]

REACTIONS (2)
  - DRUG INTERACTION [None]
  - HEPATOCELLULAR DAMAGE [None]
